FAERS Safety Report 21204851 (Version 1)
Quarter: 2022Q3

REPORT INFORMATION
  Report Type: Spontaneous
  Country: US (occurrence: US)
  Receive Date: 20220812
  Receipt Date: 20220812
  Transmission Date: 20221027
  Serious: No
  Sender: FDA-Public Use
  Company Number: US-ALLERGAN-2203937US

PATIENT
  Weight: 54.431 kg

DRUGS (2)
  1. VANIQA [Suspect]
     Active Substance: EFLORNITHINE HYDROCHLORIDE
     Indication: Product used for unknown indication
     Dosage: UNK
     Dates: start: 2019, end: 2019
  2. COVID-19 VACCINE NOS [Concomitant]
     Active Substance: COVID-19 VACCINE NOS
     Indication: COVID-19 immunisation
     Dosage: UNK, SINGLE
     Dates: start: 2020, end: 2020

REACTIONS (6)
  - Dermal cyst [Recovering/Resolving]
  - Scar [Not Recovered/Not Resolved]
  - Skin hypopigmentation [Not Recovered/Not Resolved]
  - Skin indentation [Not Recovered/Not Resolved]
  - Condition aggravated [Unknown]
  - Ingrown hair [Recovering/Resolving]

NARRATIVE: CASE EVENT DATE: 20190101
